FAERS Safety Report 23007726 (Version 4)
Quarter: 2023Q4

REPORT INFORMATION
  Report Type: Spontaneous
  Country: MX (occurrence: MX)
  Receive Date: 20230929
  Receipt Date: 20231107
  Transmission Date: 20240110
  Serious: No
  Sender: FDA-Public Use
  Company Number: MX-JNJFOC-20230922786

PATIENT
  Sex: Male

DRUGS (1)
  1. SIMPONI [Suspect]
     Active Substance: GOLIMUMAB
     Indication: Product used for unknown indication
     Dosage: STRENGTH:- 50.00 MG / 0.50 ML
     Route: 030

REACTIONS (3)
  - Device occlusion [Unknown]
  - Underdose [Unknown]
  - Off label use [Unknown]
